FAERS Safety Report 26058653 (Version 1)
Quarter: 2025Q4

REPORT INFORMATION
  Report Type: Spontaneous
  Country: BR (occurrence: BR)
  Receive Date: 20251118
  Receipt Date: 20251118
  Transmission Date: 20260118
  Serious: Yes (Hospitalization, Other)
  Sender: NOVARTIS
  Company Number: BR-002147023-NVSC2025BR175070

PATIENT
  Sex: Female

DRUGS (1)
  1. NILOTINIB [Suspect]
     Active Substance: NILOTINIB
     Indication: Product used for unknown indication
     Dosage: 40 MG, Q12H
     Route: 065

REACTIONS (8)
  - Splenomegaly [Unknown]
  - Abdominal pain [Unknown]
  - Asthenia [Unknown]
  - Hyperhidrosis [Unknown]
  - White blood cell count increased [Recovering/Resolving]
  - Gene mutation [Unknown]
  - Haemoglobin decreased [Recovered/Resolved]
  - Platelet count decreased [Not Recovered/Not Resolved]
